FAERS Safety Report 11217977 (Version 2)
Quarter: 2015Q3

REPORT INFORMATION
  Report Type: Spontaneous
  Country: CA (occurrence: CA)
  Receive Date: 20150625
  Receipt Date: 20150811
  Transmission Date: 20151125
  Serious: Yes (Other)
  Sender: FDA-Public Use
  Company Number: CA-SHIRE-CA201503353

PATIENT
  Sex: Male
  Weight: 40.82 kg

DRUGS (8)
  1. INTUNIV [Suspect]
     Active Substance: GUANFACINE HYDROCHLORIDE
     Indication: ATTENTION DEFICIT/HYPERACTIVITY DISORDER
     Dosage: 1 MG, 1X/DAY:QD (ONCE IN AM)
     Route: 048
     Dates: start: 201410, end: 2014
  2. RISPERDAL [Concomitant]
     Active Substance: RISPERIDONE
     Indication: AGGRESSION
     Dosage: 2 MG, 2X/DAY:BID
     Route: 065
  3. CLONIDINE. [Concomitant]
     Active Substance: CLONIDINE
     Indication: INSOMNIA
     Dosage: 0.1 MG, 1X/DAY:QD (HS)
     Route: 065
  4. VYVANSE [Suspect]
     Active Substance: LISDEXAMFETAMINE DIMESYLATE
     Indication: ATTENTION DEFICIT/HYPERACTIVITY DISORDER
     Dosage: 40 MG, 2X/DAY:BID
     Route: 048
  5. RISPERDAL [Concomitant]
     Active Substance: RISPERIDONE
     Indication: THEFT
  6. RISPERDAL [Concomitant]
     Active Substance: RISPERIDONE
     Indication: MOOD SWINGS
  7. CELEXA [Concomitant]
     Active Substance: CITALOPRAM HYDROBROMIDE
     Indication: ANXIETY DISORDER
     Dosage: 20 MG, 1X/DAY:QD (HS)
     Route: 065
  8. RISPERDAL [Concomitant]
     Active Substance: RISPERIDONE
     Indication: NEGATIVISM

REACTIONS (4)
  - Prescribed overdose [Not Recovered/Not Resolved]
  - Inappropriate schedule of drug administration [Not Recovered/Not Resolved]
  - Homicidal ideation [Unknown]
  - Akathisia [Recovered/Resolved]
